FAERS Safety Report 6207976-0 (Version None)
Quarter: 2009Q2

REPORT INFORMATION
  Report Type: 
  Country: None (occurrence: None)
  Receive Date: 20090529
  Receipt Date: 20090306
  Transmission Date: 20091009
  Serious: No
  Sender: FDA-Public Use
  Company Number: A0765916A

PATIENT
  Age: 41 Year
  Sex: Male

DRUGS (5)
  1. VENTOLIN [Suspect]
     Indication: ASTHMA
     Dosage: 2PUFF PER DAY
     Route: 055
     Dates: start: 19730301
  2. METFORMIN HCL [Concomitant]
  3. AMARYL [Concomitant]
  4. THYROXIN [Concomitant]
  5. INDERAL [Concomitant]

REACTIONS (1)
  - DRUG INEFFECTIVE [None]
